FAERS Safety Report 25871853 (Version 2)
Quarter: 2025Q4

REPORT INFORMATION
  Report Type: Report from Study
  Country: EU (occurrence: EU)
  Receive Date: 20251001
  Receipt Date: 20251006
  Transmission Date: 20260118
  Serious: Yes (Hospitalization)
  Sender: ABBVIE
  Company Number: EU-ABBVIE-6482102

PATIENT
  Age: 68 Year
  Sex: Male

DRUGS (6)
  1. FOSCARBIDOPA\FOSLEVODOPA [Suspect]
     Active Substance: FOSCARBIDOPA\FOSLEVODOPA
     Indication: Parkinson^s disease
     Dosage: EXTRA DOSE: 0.3, LOW RATE: 0.25, HIGH RATE: 0.33, BASE RATE: 0.33, LOADING DOSE: 0.4.
     Route: 058
     Dates: start: 20250908
  2. FLUDROCORTISONE [Concomitant]
     Active Substance: FLUDROCORTISONE
     Indication: Product used for unknown indication
     Dosage: ALPHA, 0.05 MG
  3. ESCITALOPRAM OXALATE [Concomitant]
     Active Substance: ESCITALOPRAM OXALATE
     Indication: Product used for unknown indication
     Dates: start: 20230303
  4. CLOZAPINE [Concomitant]
     Active Substance: CLOZAPINE
     Indication: Product used for unknown indication
  5. FESOTERODINE [Concomitant]
     Active Substance: FESOTERODINE
     Indication: Product used for unknown indication
  6. AMANTADINE HYDROCHLORIDE [Concomitant]
     Active Substance: AMANTADINE HYDROCHLORIDE
     Indication: Parkinson^s disease

REACTIONS (10)
  - General physical health deterioration [Unknown]
  - On and off phenomenon [Unknown]
  - Incorrect dose administered [Unknown]
  - Gait inability [Recovering/Resolving]
  - Aphasia [Unknown]
  - Hypertension [Unknown]
  - Dyskinesia [Unknown]
  - Therapeutic product effect incomplete [Unknown]
  - Infusion site haematoma [Recovering/Resolving]
  - Freezing phenomenon [Unknown]

NARRATIVE: CASE EVENT DATE: 20250901
